FAERS Safety Report 13066933 (Version 5)
Quarter: 2017Q2

REPORT INFORMATION
  Report Type: Report from Study
  Country: CO (occurrence: CO)
  Receive Date: 20161227
  Receipt Date: 20170510
  Transmission Date: 20170830
  Serious: Yes (Other)
  Sender: FDA-Public Use
  Company Number: CO-REGENERON PHARMACEUTICALS, INC.-2016-25404

PATIENT

DRUGS (2)
  1. EYLEA [Suspect]
     Active Substance: AFLIBERCEPT
     Indication: AGE-RELATED MACULAR DEGENERATION
     Dosage: UNK
     Dates: start: 2015
  2. EYLEA [Suspect]
     Active Substance: AFLIBERCEPT
     Dosage: 2 MG, LAST DOSE WAS REPORTED IN JAN-2017 (TOTAL 6 INJECTIONS, 3 IN EACH EYE)
     Dates: start: 20160104

REACTIONS (5)
  - Retinal vein thrombosis [Not Recovered/Not Resolved]
  - Headache [Not Recovered/Not Resolved]
  - Intraocular lens implant [Unknown]
  - Vision blurred [Unknown]
  - Intraocular lens implant [Recovering/Resolving]

NARRATIVE: CASE EVENT DATE: 2015
